FAERS Safety Report 8439290 (Version 2)
Quarter: 2013Q2

REPORT INFORMATION
  Report Type: Spontaneous
  Country: US (occurrence: None)
  Receive Date: 20120104
  Receipt Date: 20120508
  Transmission Date: 20140414
  Serious: Yes (Other)
  Sender: FDA-Public Use
  Company Number: 2011HGS-002666

PATIENT
  Age: 39 Year
  Sex: Female
  Weight: 108.86 kg

DRUGS (25)
  1. BENLYSTA [Suspect]
     Indication: SYSTEMIC LUPUS ERYTHEMATOSUS
     Dosage: 1 IN 28 D, INTRAVENOUS DRIP
     Route: 041
     Dates: start: 20110819
  2. CYMBALTA [Concomitant]
  3. METHOTREXATE [Concomitant]
  4. MOBIC [Concomitant]
  5. HYDROMORPHONE HYDROCHLORIDE (HYDROMORPHONE HYDROCHLORIDE) (HYDROMORPHONE HYDROCHLORIDE) [Concomitant]
  6. ZOLPIDEM [Concomitant]
  7. TOPIRAMATE [Concomitant]
  8. CYCLOBENZAPRINE HYDROCHLORIDE [Concomitant]
  9. PREDNISONE [Concomitant]
  10. LOVENOX (HEPARIN-FRACITON, SODIUM SALT) (HEPARIN-FRACTION, SODIUM SALT) [Concomitant]
  11. RESTASIS EYE DROP (CICLOSPORIN) (CICLOSPORIN) [Concomitant]
  12. FOLIC ACID [Concomitant]
  13. GABAPENTIN [Concomitant]
  14. TRAMADOL HYDROCHLORIDE [Concomitant]
  15. NATURE^S BOUNTY (NUTRITIONAL SUPPLEMENT) [Concomitant]
  16. IRON (IRON) (IRON) [Concomitant]
  17. MULTIVITAMIN (MULTIVITAMINS) (ERGOCALCIFEROL, ASCORBIC ACID, FOLIC ACID, THIAMINE HYDROCHLORIDE, RETINOL, RIBOFLAVIN, NICOTINAMIDE, PANTHENOL) [Concomitant]
  18. VITAMIN D (ERGOCALCIFEROL) (ERGOCALCIFEROL) [Concomitant]
  19. VITAMIN B12 (CYANOCOBALAMIN) (CYANOCOBALAMIN) [Concomitant]
  20. CALCIUM (CALCIUM) (CALCIUM) [Concomitant]
  21. OMEGA 3 FISH OIL (FISH OIL) (FISH OIL) [Concomitant]
  22. FLUOXETINE [Concomitant]
  23. SALAGEN (PILOCARPINE HYDORCHLORIDE) (PILOCARPINE HYDROCHLORIDE) [Concomitant]
  24. ASPIRIN [Concomitant]
  25. FIBER LAXATIVE [Concomitant]

REACTIONS (12)
  - DYSPEPSIA [None]
  - BLISTER [None]
  - PRURITUS [None]
  - SKIN EXFOLIATION [None]
  - ALOPECIA [None]
  - NAIL DISORDER [None]
  - NASOPHARYNGITIS [None]
  - NASAL CONGESTION [None]
  - OROPHARYNGEAL PAIN [None]
  - PRODUCTIVE COUGH [None]
  - DIARRHOEA [None]
  - DEPRESSION [None]
